FAERS Safety Report 13997215 (Version 1)
Quarter: 2017Q3

REPORT INFORMATION
  Report Type: Spontaneous
  Country: FR (occurrence: FR)
  Receive Date: 20170921
  Receipt Date: 20170921
  Transmission Date: 20171128
  Serious: Yes (Other)
  Sender: FDA-Public Use
  Company Number: FR-BRACCO-2017FR04280

PATIENT
  Age: 39 Year
  Sex: Female

DRUGS (1)
  1. MULTIHANCE [Suspect]
     Active Substance: GADOBENATE DIMEGLUMINE
     Indication: NUCLEAR MAGNETIC RESONANCE IMAGING BRAIN
     Dosage: 20 ML, SINGLE
     Route: 042
     Dates: start: 20170913, end: 20170913

REACTIONS (4)
  - Hypotension [Recovered/Resolved]
  - Hyperhidrosis [Recovered/Resolved]
  - Tachycardia [Recovered/Resolved]
  - Vomiting [Recovered/Resolved]

NARRATIVE: CASE EVENT DATE: 20170913
